FAERS Safety Report 6853426-0 (Version None)
Quarter: 2010Q3

REPORT INFORMATION
  Report Type: 
  Country: None (occurrence: None)
  Receive Date: 20100717
  Receipt Date: 20071206
  Transmission Date: 20110219
  Serious: No
  Sender: FDA-Public Use
  Company Number: US-PFIZER INC-2007103914

PATIENT
  Sex: Male
  Weight: 104.5 kg

DRUGS (37)
  1. CHANTIX [Suspect]
     Indication: SMOKING CESSATION THERAPY
     Route: 048
     Dates: start: 20071201
  2. CRANBERRY [Concomitant]
     Indication: DRY THROAT
  3. EPZICOM [Concomitant]
  4. EPZICOM [Concomitant]
  5. VIRAMUNE [Concomitant]
  6. VIRAMUNE [Concomitant]
  7. ROBAXIN [Concomitant]
  8. ROBAXIN [Concomitant]
  9. SPIRIVA [Concomitant]
  10. SPIRIVA [Concomitant]
  11. TOPROL-XL [Concomitant]
  12. TOPROL-XL [Concomitant]
  13. VITAPLEX [Concomitant]
  14. VITAPLEX [Concomitant]
  15. WARFARIN SODIUM [Concomitant]
  16. WARFARIN SODIUM [Concomitant]
  17. ZYRTEC [Concomitant]
  18. ZYRTEC [Concomitant]
  19. PHENAZOPYRIDINE HCL TAB [Concomitant]
  20. PHENAZOPYRIDINE HCL TAB [Concomitant]
  21. VICODIN [Concomitant]
  22. VICODIN [Concomitant]
  23. LIPITOR [Concomitant]
  24. LIPITOR [Concomitant]
  25. CLONAZEPAM [Concomitant]
  26. CLONAZEPAM [Concomitant]
  27. POTASSIUM CHLORIDE [Concomitant]
  28. POTASSIUM CHLORIDE [Concomitant]
  29. PREVACID [Concomitant]
  30. PREVACID [Concomitant]
  31. REQUIP [Concomitant]
  32. REQUIP [Concomitant]
  33. GABAPENTIN [Concomitant]
  34. GABAPENTIN [Concomitant]
  35. VENLAFAXINE HYDROCHLORIDE [Concomitant]
  36. VENLAFAXINE HYDROCHLORIDE [Concomitant]
  37. CELEBREX [Concomitant]

REACTIONS (1)
  - DRY THROAT [None]
